FAERS Safety Report 9827989 (Version 1)
Quarter: 2014Q1

REPORT INFORMATION
  Report Type: Spontaneous
  Country: US (occurrence: None)
  Receive Date: 20140116
  Receipt Date: 20140116
  Transmission Date: 20141002
  Serious: Yes (Hospitalization)
  Sender: FDA-Public Use
  Company Number: None

PATIENT
  Age: 45 Year
  Sex: Male

DRUGS (2)
  1. MEROPENEM [Suspect]
     Indication: URINARY TRACT INFECTION
     Route: 042
     Dates: start: 20130818, end: 20130831
  2. CEFEPIME [Suspect]
     Indication: URINARY TRACT INFECTION

REACTIONS (2)
  - Diarrhoea [None]
  - Clostridium difficile infection [None]
